FAERS Safety Report 25700563 (Version 1)
Quarter: 2025Q3

REPORT INFORMATION
  Report Type: Spontaneous
  Country: TW (occurrence: TW)
  Receive Date: 20250819
  Receipt Date: 20250819
  Transmission Date: 20251020
  Serious: Yes (Life-Threatening)
  Sender: FRESENIUS KABI
  Company Number: TW-FreseniusKabi-FK202511327

PATIENT
  Age: 58 Year
  Sex: Male
  Weight: 53 kg

DRUGS (6)
  1. CISPLATIN [Suspect]
     Active Substance: CISPLATIN
     Indication: Neoplasm malignant
     Route: 041
     Dates: start: 20250805, end: 20250805
  2. PLATINOL [Concomitant]
     Active Substance: CISPLATIN
     Indication: Neoplasm malignant
     Dosage: SECOND CYCLE OF THE PF REGIMEN
     Dates: start: 20250805
  3. PLATINOL [Concomitant]
     Active Substance: CISPLATIN
     Dosage: FIRST CYCLE OF THE PF REGIMEN
     Dates: start: 20250715, end: 20250719
  4. FLUOROURACIL [Concomitant]
     Active Substance: FLUOROURACIL
     Indication: Neoplasm malignant
     Dosage: THE SECOND CYCLE OF THE PF REGIMEN
     Dates: start: 20250805
  5. FLUOROURACIL [Concomitant]
     Active Substance: FLUOROURACIL
     Dosage: THE FIRST CYCLE OF THE PF REGIMEN
     Dates: start: 20250715, end: 20250719
  6. SODIUM CHLORIDE [Concomitant]
     Active Substance: SODIUM CHLORIDE
     Indication: Product used for unknown indication
     Dates: start: 20250805

REACTIONS (1)
  - Anaphylactic shock [Recovered/Resolved]

NARRATIVE: CASE EVENT DATE: 20250805
